FAERS Safety Report 18714310 (Version 1)
Quarter: 2021Q1

REPORT INFORMATION
  Report Type: Report from Study
  Country: US (occurrence: US)
  Receive Date: 20210107
  Receipt Date: 20210107
  Transmission Date: 20210419
  Serious: Yes (Hospitalization, Other)
  Sender: FDA-Public Use
  Company Number: US-BAUSCH-BL-2020-008760

PATIENT
  Age: 75 Year
  Sex: Male
  Weight: 92.16 kg

DRUGS (9)
  1. DIGOXIN. [Concomitant]
     Active Substance: DIGOXIN
     Indication: PRODUCT USED FOR UNKNOWN INDICATION
     Dosage: 0.25 (MG)
     Route: 048
  2. XIFAXAN [Suspect]
     Active Substance: RIFAXIMIN
     Indication: HEPATIC CIRRHOSIS
     Route: 048
     Dates: start: 20200512, end: 2020
  3. DIGOXIN. [Concomitant]
     Active Substance: DIGOXIN
     Dosage: 0.25 (MG)
     Route: 048
  4. SUPREP BOWEL PREP [Concomitant]
     Active Substance: MAGNESIUM SULFATE\POTASSIUM SULFATE\SODIUM SULFATE
     Indication: PRODUCT USED FOR UNKNOWN INDICATION
     Dosage: 17.5 GM TO 3.13 GM (1.5 GM ORAL SOLUTION) TAKEN AS DIRECTED
     Dates: start: 20200615, end: 20201221
  5. VALIUM [Concomitant]
     Active Substance: DIAZEPAM
     Indication: OESOPHAGEAL SPASM
     Dosage: 1 TABLET
     Route: 048
     Dates: start: 20190108
  6. PANTOPRAZOLE [Concomitant]
     Active Substance: PANTOPRAZOLE
     Indication: PRODUCT USED FOR UNKNOWN INDICATION
     Dosage: 30 MIN BEFORE BREAKFAST.
     Route: 048
     Dates: start: 20201016
  7. LASIX [Concomitant]
     Active Substance: FUROSEMIDE
     Indication: PRODUCT USED FOR UNKNOWN INDICATION
     Route: 048
     Dates: start: 20200512
  8. TRAZODONE [Concomitant]
     Active Substance: TRAZODONE HYDROCHLORIDE
     Indication: PRODUCT USED FOR UNKNOWN INDICATION
     Dosage: BED TIME
     Route: 048
     Dates: start: 20200512
  9. LACTULOSE. [Concomitant]
     Active Substance: LACTULOSE
     Indication: HEPATIC CIRRHOSIS
     Dosage: 20GM/30 ML. (2 TO 3 TIMES EVERY DAY
     Route: 048
     Dates: start: 20200512, end: 20201221

REACTIONS (7)
  - Internal hernia [Unknown]
  - Therapy interrupted [Unknown]
  - Diverticulitis [Unknown]
  - Splenomegaly [Unknown]
  - Melaena [Unknown]
  - Haemoptysis [Recovered/Resolved]
  - COVID-19 [Unknown]

NARRATIVE: CASE EVENT DATE: 2020
